FAERS Safety Report 4507685-X (Version None)
Quarter: 2004Q4

REPORT INFORMATION
  Report Type: 
  Country: None (occurrence: None)
  Receive Date: 20041122
  Receipt Date: 20041104
  Transmission Date: 20050328
  Serious: Yes (Hospitalization, Disabling)
  Sender: FDA-Public Use
  Company Number: TRP_0031_2004

PATIENT
  Age: 51 Year
  Sex: Female

DRUGS (2)
  1. RIBASPHERE [Suspect]
     Indication: HEPATITIS C
     Dates: start: 20040730, end: 20041019
  2. PEG-INTRON [Suspect]
     Indication: HEPATITIS C
     Dates: start: 20040730, end: 20041001

REACTIONS (7)
  - DYSPNOEA [None]
  - FACE INJURY [None]
  - FATIGUE [None]
  - HYPOKALAEMIC SYNDROME [None]
  - LOSS OF CONSCIOUSNESS [None]
  - SYNCOPE [None]
  - VIRAL LOAD DECREASED [None]
